FAERS Safety Report 8084115-5 (Version None)
Quarter: 2012Q1

REPORT INFORMATION
  Report Type: 
  Country: None (occurrence: None)
  Receive Date: 20120128
  Receipt Date: 20110127
  Transmission Date: 20120608
  Serious: No
  Sender: FDA-Public Use
  Company Number: US-ABBOTT-11P-163-0701049-00

PATIENT
  Age: 62 Year
  Sex: Male

DRUGS (7)
  1. IMURAN [Concomitant]
     Indication: CROHN'S DISEASE
  2. HYDROCODONE BITARTRATE [Concomitant]
     Indication: PAIN
     Dosage: 5/500MG
  3. ZEGERID [Concomitant]
     Indication: GASTROOESOPHAGEAL REFLUX DISEASE
     Dosage: IN AM
  4. COLOSOL [Concomitant]
     Indication: CROHN'S DISEASE
  5. HUMIRA [Suspect]
     Indication: CROHN'S DISEASE
     Dosage: 160 MG 1/21/2011 THEN 80 MG THEN 40 MG EVERY OTHER WEEK
     Dates: start: 20110121
  6. PREDNISONE TAB [Concomitant]
     Indication: CROHN'S DISEASE
  7. AMBIEN [Concomitant]
     Indication: INSOMNIA
     Dosage: AT BEDTIME

REACTIONS (4)
  - CONTUSION [None]
  - JOINT SWELLING [None]
  - RASH MACULAR [None]
  - ARTHRALGIA [None]
